FAERS Safety Report 11911008 (Version 1)
Quarter: 2016Q1

REPORT INFORMATION
  Report Type: Spontaneous
  Country: US (occurrence: None)
  Receive Date: 20160111
  Receipt Date: 20160111
  Transmission Date: 20160526
  Serious: Yes (Other)
  Sender: FDA-Public Use
  Company Number: None

PATIENT
  Age: 40 Year
  Sex: Female
  Weight: 63.5 kg

DRUGS (2)
  1. PRISTIQ EXTENDED RELEASE [Suspect]
     Active Substance: DESVENLAFAXINE SUCCINATE
     Indication: MAJOR DEPRESSION
     Dosage: 1 PILL ONCE DAILY
     Route: 048
     Dates: start: 20151105, end: 20160102
  2. ALEVE [Concomitant]
     Active Substance: NAPROXEN SODIUM

REACTIONS (9)
  - Impaired work ability [None]
  - Mobility decreased [None]
  - Nausea [None]
  - Anxiety [None]
  - Dizziness [None]
  - Depersonalisation/derealisation disorder [None]
  - Fatigue [None]
  - Depressed level of consciousness [None]
  - Disturbance in attention [None]

NARRATIVE: CASE EVENT DATE: 20160109
